FAERS Safety Report 19644661 (Version 1)
Quarter: 2021Q3

REPORT INFORMATION
  Report Type: Spontaneous
  Country: LT (occurrence: LT)
  Receive Date: 20210802
  Receipt Date: 20210802
  Transmission Date: 20211014
  Serious: Yes (Death, Other)
  Sender: FDA-Public Use
  Company Number: LT-BRISTOL-MYERS SQUIBB COMPANY-BMS-2021-074883

PATIENT
  Age: 62 Year
  Sex: Male

DRUGS (3)
  1. CABOMETYX [Suspect]
     Active Substance: CABOZANTINIB S-MALATE
     Indication: RENAL CANCER
     Dosage: 60 MILLIGRAM, QD
     Route: 065
     Dates: start: 20191127, end: 201912
  2. CABOMETYX [Suspect]
     Active Substance: CABOZANTINIB S-MALATE
     Dosage: 40 MG, QD
     Route: 065
     Dates: start: 201912, end: 202103
  3. NIVOLUMAB [Suspect]
     Active Substance: NIVOLUMAB
     Indication: RENAL CANCER
     Dosage: 480 MG, Q4WEEKS
     Route: 065
     Dates: start: 20210326

REACTIONS (1)
  - Death [Fatal]

NARRATIVE: CASE EVENT DATE: 20210709
